FAERS Safety Report 8702325 (Version 2)
Quarter: 2012Q4

REPORT INFORMATION
  Report Type: Report from Study
  Country: JP (occurrence: JP)
  Receive Date: 20120803
  Receipt Date: 20120829
  Transmission Date: 20130627
  Serious: Yes (Other)
  Sender: FDA-Public Use
  Company Number: JP-ASTELLAS-2012JP006620

PATIENT
  Age: 61 Year
  Sex: Male
  Weight: 55 kg

DRUGS (17)
  1. TACROLIMUS [Suspect]
     Indication: COLITIS ULCERATIVE
     Dosage: 2 mg, bid
     Route: 048
     Dates: start: 20110216, end: 20120612
  2. TACROLIMUS [Suspect]
     Dosage: 3 mg, bid
     Route: 048
     Dates: start: 20110208, end: 20110209
  3. TACROLIMUS [Suspect]
     Dosage: 4 mg, bid
     Route: 048
     Dates: start: 20110210, end: 20110211
  4. TACROLIMUS [Suspect]
     Dosage: 3 mg, bid
     Route: 048
     Dates: start: 20110212, end: 20110215
  5. TPN [Suspect]
     Dosage: UNK
     Route: 041
     Dates: start: 20110204, end: 20110224
  6. PENTASA [Concomitant]
     Indication: COLITIS ULCERATIVE
     Dosage: 3000 mg, Unknown/D
     Route: 048
  7. IMURAN                             /00001501/ [Concomitant]
     Indication: COLITIS ULCERATIVE
     Dosage: 25 mg, qod
     Route: 048
     Dates: end: 20101221
  8. RINDERON                           /00008502/ [Concomitant]
     Indication: COLITIS ULCERATIVE
     Dosage: 0.5 mg, Unknown/D
     Route: 054
  9. FERRUM                             /00023505/ [Concomitant]
     Dosage: 100 mg, Unknown/D
     Route: 048
  10. BIOFERMIN                          /01617201/ [Concomitant]
     Indication: COLITIS ULCERATIVE
     Dosage: 3 g, Unknown/D
     Route: 048
  11. OMEPRAL /00661201/ [Concomitant]
     Dosage: 20 mg, Unknown/D
     Route: 048
  12. CEREKINON [Concomitant]
     Dosage: 600 mg, Unknown/D
     Route: 048
  13. BONALON [Concomitant]
     Indication: PROPHYLAXIS
     Dosage: 35 mg, Weekly
     Route: 048
  14. SILECE [Concomitant]
     Dosage: 2 mg, Unknown/D
     Route: 048
  15. CORTRIL                            /00028601/ [Concomitant]
     Indication: PROPHYLAXIS
     Dosage: 10 mg, Unknown/D
     Route: 048
  16. CRESTOR [Concomitant]
     Dosage: 2.5 mg, Unknown/D
     Route: 048
  17. CINAL [Concomitant]
     Dosage: 200 mg, Unknown/D
     Route: 048

REACTIONS (3)
  - Liver disorder [Recovered/Resolved]
  - Aspartate aminotransferase increased [None]
  - Alanine aminotransferase increased [None]
